FAERS Safety Report 9124640 (Version 1)
Quarter: 2013Q1

REPORT INFORMATION
  Report Type: Report from Study
  Country: CA (occurrence: CA)
  Receive Date: 20130227
  Receipt Date: 20130227
  Transmission Date: 20140127
  Serious: Yes (Other)
  Sender: FDA-Public Use
  Company Number: CA-ROCHE-1189003

PATIENT
  Sex: Female
  Weight: 99.3 kg

DRUGS (12)
  1. RITUXAN [Suspect]
     Indication: RHEUMATOID ARTHRITIS
     Route: 042
     Dates: start: 20130205
  2. VITAMIN B12 [Concomitant]
  3. METHOTREXATE [Concomitant]
     Indication: RHEUMATOID ARTHRITIS
     Route: 048
     Dates: start: 20100201
  4. TYLENOL [Concomitant]
     Route: 065
  5. VALSARTAN [Concomitant]
     Indication: HYPERTENSION
  6. FOLIC ACID [Concomitant]
     Indication: RHEUMATOID ARTHRITIS
     Route: 048
     Dates: start: 20100201
  7. APO-HYDRO [Concomitant]
  8. DIPHENHYDRAMINE HCL [Concomitant]
     Route: 048
     Dates: start: 20130205
  9. ACETAMINOPHEN [Concomitant]
     Route: 048
     Dates: start: 20130205
  10. METHYLPREDNISOLONE [Concomitant]
     Route: 042
     Dates: start: 20130205
  11. DIOVAN [Concomitant]
     Indication: HYPERTENSION
     Route: 048
     Dates: start: 20100608
  12. HYDROCHLOROTHIAZIDE [Concomitant]
     Indication: HYPERTENSION
     Route: 048
     Dates: start: 20100708

REACTIONS (5)
  - Infusion related reaction [Recovered/Resolved]
  - Muscle twitching [Unknown]
  - Coordination abnormal [Unknown]
  - Pruritus [Recovered/Resolved]
  - Hypersensitivity [Recovered/Resolved]
